FAERS Safety Report 9172587 (Version 1)
Quarter: 2012Q4

REPORT INFORMATION
  Report Type: 
  Country: US (occurrence: US)
  Receive Date: 20120911
  Receipt Date: 20120911
  Transmission Date: 20130627
  Serious: Yes (Other)
  Sender: FDA-Public Use
  Company Number: PHHY2012US077995

PATIENT
  Age: 51 Year
  Sex: Male

DRUGS (1)
  1. BUFFERIN [Suspect]
     Route: 048
     Dates: end: 1990

REACTIONS (2)
  - Gastric ulcer haemorrhage [Recovered/Resolved]
  - Abdominal pain upper [Recovered/Resolved]
